FAERS Safety Report 5646487-8 (Version None)
Quarter: 2008Q1

REPORT INFORMATION
  Report Type: 
  Country: None (occurrence: None)
  Receive Date: 20080228
  Receipt Date: 20080228
  Transmission Date: 20080703
  Serious: Yes (Death)
  Sender: FDA-Public Use
  Company Number: None

PATIENT
  Age: 65 Year
  Sex: Female

DRUGS (2)
  1. GEMCITABINE [Suspect]
     Indication: PANCREATIC CARCINOMA METASTATIC
     Dosage: 1G IV WEEKLY
     Route: 042
     Dates: start: 20080215, end: 20080221
  2. LAPATINIB [Suspect]
     Dosage: 1500 MG DAILY PO
     Route: 048
     Dates: start: 20080215, end: 20080226

REACTIONS (9)
  - ACIDOSIS [None]
  - ANAL ULCER [None]
  - BLOOD CREATININE INCREASED [None]
  - CHOLANGITIS [None]
  - DECUBITUS ULCER [None]
  - GENERAL PHYSICAL HEALTH DETERIORATION [None]
  - HYPOTENSION [None]
  - INFECTION [None]
  - SEPSIS [None]
